FAERS Safety Report 17391063 (Version 2)
Quarter: 2020Q1

REPORT INFORMATION
  Report Type: Spontaneous
  Country: US (occurrence: US)
  Receive Date: 20200207
  Receipt Date: 20200303
  Transmission Date: 20200409
  Serious: No
  Sender: FDA-Public Use
  Company Number: US-ASTRAZENECA-2020SE13352

PATIENT
  Age: 66 Year
  Sex: Female
  Weight: 80.7 kg

DRUGS (4)
  1. BYDUREON BCISE [Suspect]
     Active Substance: EXENATIDE
     Indication: GLUCOSE TOLERANCE IMPAIRED
     Dosage: 2 INJECTIONS
     Route: 065
     Dates: start: 20200113
  2. BYDUREON BCISE [Suspect]
     Active Substance: EXENATIDE
     Indication: GLYCOSYLATED HAEMOGLOBIN DECREASED
     Dosage: 2 INJECTIONS
     Route: 065
     Dates: start: 20200113
  3. VICTOZA [Concomitant]
     Active Substance: LIRAGLUTIDE
  4. REPAGLINIDE. [Concomitant]
     Active Substance: REPAGLINIDE

REACTIONS (5)
  - Blood glucose increased [Unknown]
  - Injection site haemorrhage [Unknown]
  - Injection site pain [Unknown]
  - Needle issue [Unknown]
  - Injection site discolouration [Unknown]

NARRATIVE: CASE EVENT DATE: 2020
